FAERS Safety Report 8308688-X (Version None)
Quarter: 2012Q2

REPORT INFORMATION
  Report Type: 
  Country: None (occurrence: None)
  Receive Date: 20120424
  Receipt Date: 20120418
  Transmission Date: 20120825
  Serious: Yes (Hospitalization)
  Sender: FDA-Public Use
  Company Number: CA-ABBOTT-12P-028-0927407-00

PATIENT
  Sex: Male

DRUGS (1)
  1. HUMIRA [Suspect]
     Indication: CROHN'S DISEASE
     Route: 058
     Dates: start: 20110727

REACTIONS (9)
  - LOCAL SWELLING [None]
  - OROPHARYNGEAL PAIN [None]
  - LETHARGY [None]
  - SENSATION OF PRESSURE [None]
  - INCREASED UPPER AIRWAY SECRETION [None]
  - GROIN PAIN [None]
  - HEADACHE [None]
  - NASAL CONGESTION [None]
  - VOMITING [None]
